FAERS Safety Report 5485382-4 (Version None)
Quarter: 2007Q4

REPORT INFORMATION
  Report Type: 
  Country: None (occurrence: None)
  Receive Date: 20071010
  Receipt Date: 20071010
  Transmission Date: 20080405
  Serious: Yes (Hospitalization)
  Sender: FDA-Public Use
  Company Number: None

PATIENT
  Sex: Male

DRUGS (1)
  1. BLEOMYCIN [Suspect]
     Indication: LYMPHOMA
     Dosage: 23 UNITS Q2WEEKS IV
     Route: 042
     Dates: start: 20070720, end: 20070720

REACTIONS (3)
  - COUGH [None]
  - DYSPNOEA [None]
  - PNEUMONITIS [None]
